FAERS Safety Report 7263714-4 (Version None)
Quarter: 2011Q1

REPORT INFORMATION
  Report Type: 
  Country: None (occurrence: None)
  Receive Date: 20110130
  Receipt Date: 20101129
  Transmission Date: 20110831
  Serious: No
  Sender: FDA-Public Use
  Company Number: US-ABBOTT-10P-163-0688142-00

PATIENT
  Age: 32 Year
  Sex: Male

DRUGS (3)
  1. BUDESONIDE [Concomitant]
     Indication: CROHN'S DISEASE
  2. HUMIRA [Suspect]
     Indication: CROHN'S DISEASE
     Dates: start: 20100301
  3. UNKNOWN MEDICATION [Concomitant]
     Indication: PAIN
     Dosage: AS NEEDED

REACTIONS (1)
  - ARTHRALGIA [None]
